FAERS Safety Report 9183581 (Version 1)
Quarter: 2013Q1

REPORT INFORMATION
  Report Type: Spontaneous
  Country: US (occurrence: US)
  Receive Date: 20130322
  Receipt Date: 20130322
  Transmission Date: 20140127
  Serious: No
  Sender: FDA-Public Use
  Company Number: US-BRISTOL-MYERS SQUIBB COMPANY-16557159

PATIENT
  Age: 45 Year
  Sex: Male
  Weight: 60 kg

DRUGS (7)
  1. ERBITUX [Suspect]
     Indication: LUNG NEOPLASM MALIGNANT
     Dosage: TOTAL INFU: 3?RECENT INFU: 27APR2012
     Dates: start: 20120413
  2. TAXOL [Suspect]
  3. CARBOPLATIN [Suspect]
  4. VIREAD [Concomitant]
  5. BACTROBAN [Concomitant]
     Dosage: 1DF= 8MG/16MG
  6. XANAX [Concomitant]
  7. CANNABIS SATIVA SUBSP. INDICA TOP [Concomitant]

REACTIONS (3)
  - Rash pruritic [Unknown]
  - Constipation [Unknown]
  - Epistaxis [Unknown]
